FAERS Safety Report 7068603-6 (Version None)
Quarter: 2010Q4

REPORT INFORMATION
  Report Type: 
  Country: None (occurrence: None)
  Receive Date: 20101028
  Receipt Date: 20101019
  Transmission Date: 20110411
  Serious: Yes (Other)
  Sender: FDA-Public Use
  Company Number: US-SANOFI-AVENTIS-2010SA064595

PATIENT
  Age: 67 Year
  Sex: Female
  Weight: 108.8 kg

DRUGS (7)
  1. PLAVIX [Suspect]
     Route: 048
     Dates: start: 20091201
  2. ALL OTHER THERAPEUTIC PRODUCTS [Concomitant]
  3. NORVASC [Concomitant]
  4. IMDUR [Concomitant]
  5. LEVOTHYROXINE [Concomitant]
  6. ZOCOR [Concomitant]
  7. TRANXENE [Concomitant]

REACTIONS (3)
  - PHOTOPSIA [None]
  - VISUAL FIELD DEFECT [None]
  - VITREOUS DISORDER [None]
